FAERS Safety Report 6835708-1 (Version None)
Quarter: 2010Q3

REPORT INFORMATION
  Report Type: 
  Country: None (occurrence: None)
  Receive Date: 20100712
  Receipt Date: 20100712
  Transmission Date: 20110219
  Serious: Yes (Other)
  Sender: FDA-Public Use
  Company Number: None

PATIENT
  Age: 37 Year
  Sex: Female
  Weight: 81.64 kg

DRUGS (2)
  1. VANCOMYCIN HCL [Suspect]
     Indication: STREPTOCOCCUS TEST POSITIVE
     Dosage: 1 GRAM Q 12 HOURS IV
     Route: 042
     Dates: start: 20100708, end: 20100708
  2. HEPARIN [Concomitant]

REACTIONS (1)
  - PRURITUS [None]
